FAERS Safety Report 15992622 (Version 1)
Quarter: 2019Q1

REPORT INFORMATION
  Report Type: Spontaneous
  Country: FR (occurrence: FR)
  Receive Date: 20190221
  Receipt Date: 20190221
  Transmission Date: 20190418
  Serious: Yes (Other)
  Sender: FDA-Public Use
  Company Number: FR-PFIZER INC-2019070650

PATIENT
  Age: 44 Year
  Sex: Male

DRUGS (2)
  1. CHAMPIX [Suspect]
     Active Substance: VARENICLINE TARTRATE
     Indication: SMOKING CESSATION THERAPY
     Dosage: UNK
  2. IMETH [METHOTREXATE SODIUM] [Concomitant]
     Active Substance: METHOTREXATE SODIUM
     Indication: PSORIATIC ARTHROPATHY
     Dosage: 20 MG, WEEKLY

REACTIONS (9)
  - Streptococcal infection [Unknown]
  - Micturition urgency [Unknown]
  - Arthralgia [Unknown]
  - Ejaculation disorder [Unknown]
  - Psoriatic arthropathy [Unknown]
  - Myalgia [Unknown]
  - Synovial cyst [Unknown]
  - Musculoskeletal stiffness [Unknown]
  - Dysuria [Unknown]
